FAERS Safety Report 16697820 (Version 1)
Quarter: 2019Q3

REPORT INFORMATION
  Report Type: Spontaneous
  Country: US (occurrence: US)
  Receive Date: 20190813
  Receipt Date: 20190813
  Transmission Date: 20191004
  Serious: Yes (Hospitalization, Other)
  Sender: FDA-Public Use
  Company Number: US-PFIZER INC-2019343223

PATIENT
  Age: 61 Year
  Sex: Female
  Weight: 76.64 kg

DRUGS (2)
  1. LETROZOLE. [Concomitant]
     Active Substance: LETROZOLE
     Indication: BREAST CANCER
     Dosage: 12.5 MG, 1X/DAY
     Route: 048
  2. IBRANCE [Suspect]
     Active Substance: PALBOCICLIB
     Indication: BREAST CANCER
     Dosage: 125 MG, CYCLIC [ONCE DAILY FOR 21 DAYS ON 7 DAYS OFF  ]
     Route: 048
     Dates: start: 201809

REACTIONS (4)
  - Abdominal hernia [Not Recovered/Not Resolved]
  - Hemiparesis [Not Recovered/Not Resolved]
  - Pain in extremity [Unknown]
  - Musculoskeletal pain [Unknown]
